FAERS Safety Report 6256678-3 (Version None)
Quarter: 2009Q3

REPORT INFORMATION
  Report Type: 
  Country: None (occurrence: None)
  Receive Date: 20090706
  Receipt Date: 20090625
  Transmission Date: 20100115
  Serious: Yes (Other)
  Sender: FDA-Public Use
  Company Number: US-BAYER-200918666NA

PATIENT
  Age: 28 Year
  Sex: Female

DRUGS (5)
  1. BETASERON [Suspect]
     Indication: RELAPSING-REMITTING MULTIPLE SCLEROSIS
     Route: 058
     Dates: start: 19970101, end: 19980501
  2. BETASERON [Suspect]
     Route: 058
     Dates: end: 20070101
  3. LO/OVRAL [Concomitant]
     Indication: CONTRACEPTION
     Route: 048
  4. NOVANTRONE [Concomitant]
     Dosage: LOW DOSE NOVANTRONE FOR 2 1/2 YEARS
  5. REBIF [Concomitant]
     Dates: start: 20090301

REACTIONS (3)
  - BLOOD PRESSURE INCREASED [None]
  - CEREBRAL HAEMORRHAGE [None]
  - HEADACHE [None]
